FAERS Safety Report 7201237-9 (Version None)
Quarter: 2010Q4

REPORT INFORMATION
  Report Type: 
  Country: None (occurrence: None)
  Receive Date: 20101227
  Receipt Date: 20101227
  Transmission Date: 20110411
  Serious: Yes (Hospitalization, Other)
  Sender: FDA-Public Use
  Company Number: None

PATIENT
  Age: 15 Year
  Sex: Male
  Weight: 77.1115 kg

DRUGS (1)
  1. ACYCLOVIR [Suspect]
     Indication: HERPES ZOSTER
     Dosage: FOR 7 DAYS 1 -4X A DAY PO
     Route: 048
     Dates: start: 20100907, end: 20100914

REACTIONS (10)
  - ARTHRALGIA [None]
  - DISORIENTATION [None]
  - FATIGUE [None]
  - HEADACHE [None]
  - HYPERSOMNIA [None]
  - LOSS OF CONSCIOUSNESS [None]
  - METAMORPHOPSIA [None]
  - NAUSEA [None]
  - PAIN [None]
  - SOMNOLENCE [None]
